FAERS Safety Report 7880314-3 (Version None)
Quarter: 2011Q4

REPORT INFORMATION
  Report Type: 
  Country: None (occurrence: None)
  Receive Date: 20111101
  Receipt Date: 20111027
  Transmission Date: 20120403
  Serious: Yes (Other)
  Sender: FDA-Public Use
  Company Number: PT-BAYER-2011-055458

PATIENT
  Age: 41 Year
  Sex: Female

DRUGS (1)
  1. BETASERON [Suspect]
     Indication: RELAPSING-REMITTING MULTIPLE SCLEROSIS
     Dosage: 250 MCG, QOD
     Route: 058
     Dates: start: 20091010

REACTIONS (4)
  - THYROID NEOPLASM [None]
  - INJECTION SITE RASH [None]
  - INJECTION SITE REACTION [None]
  - INJECTION SITE MASS [None]
